FAERS Safety Report 12423280 (Version 1)
Quarter: 2016Q2

REPORT INFORMATION
  Report Type: Spontaneous
  Country: US (occurrence: None)
  Receive Date: 20160531
  Receipt Date: 20160531
  Transmission Date: 20160815
  Serious: No
  Sender: FDA-Public Use
  Company Number: None

PATIENT
  Age: 53 Year
  Sex: Male
  Weight: 83.92 kg

DRUGS (10)
  1. VITAFUSION CHEWABLES: MENS DAILY VITAMIN [Concomitant]
  2. METROPOLOL [Concomitant]
     Active Substance: METOPROLOL
  3. ATORVASTIN [Concomitant]
     Active Substance: ATORVASTATIN
  4. PANTOPRAZOLE [Concomitant]
     Active Substance: PANTOPRAZOLE SODIUM
  5. LISINOPRIL. [Concomitant]
     Active Substance: LISINOPRIL
  6. ASPIRIN 81MG CHEW [Concomitant]
  7. MELATONIN CHEWABLES [Concomitant]
  8. OMEGA [Concomitant]
     Active Substance: CONVALLARIA MAJALIS\CRATAEGUS LAEVIGATA LEAF\PROXYPHYLLINE
  9. AMIODARONE [Concomitant]
     Active Substance: AMIODARONE
  10. CIALIS [Suspect]
     Active Substance: TADALAFIL
     Indication: ERECTILE DYSFUNCTION
     Route: 048

REACTIONS (2)
  - Myocardial infarction [None]
  - Loss of consciousness [None]

NARRATIVE: CASE EVENT DATE: 20160529
